FAERS Safety Report 4721234-2 (Version None)
Quarter: 2005Q3

REPORT INFORMATION
  Report Type: 
  Country: None (occurrence: None)
  Receive Date: 20050722
  Receipt Date: 20050713
  Transmission Date: 20060218
  Serious: Yes (Death, Hospitalization, Other)
  Sender: FDA-Public Use
  Company Number: US-JNJFOC-20040809421

PATIENT
  Sex: Female
  Weight: 47.63 kg

DRUGS (4)
  1. REMICADE [Suspect]
     Route: 042
  2. REMICADE [Suspect]
     Route: 042
  3. REMICADE [Suspect]
     Indication: CROHN'S DISEASE
     Route: 042
  4. PENTASA [Concomitant]

REACTIONS (9)
  - ABSCESS [None]
  - ENTEROCUTANEOUS FISTULA [None]
  - HERPES ZOSTER [None]
  - INFLUENZA LIKE ILLNESS [None]
  - MALNUTRITION [None]
  - OEDEMA PERIPHERAL [None]
  - ROSACEA [None]
  - SEPSIS [None]
  - SMALL INTESTINAL OBSTRUCTION [None]
